FAERS Safety Report 12195220 (Version 4)
Quarter: 2016Q4

REPORT INFORMATION
  Report Type: Report from Study
  Country: DE (occurrence: DE)
  Receive Date: 20160321
  Receipt Date: 20161117
  Transmission Date: 20170207
  Serious: Yes (Hospitalization)
  Sender: FDA-Public Use
  Company Number: DE-JNJFOC-20160318440

PATIENT
  Age: 4 Decade
  Sex: Male
  Weight: 72.6 kg

DRUGS (8)
  1. AZATHIOPRIN [Concomitant]
     Active Substance: AZATHIOPRINE
     Route: 065
  2. SIMPONI [Suspect]
     Active Substance: GOLIMUMAB
     Indication: COLITIS ULCERATIVE
     Dosage: 16-DEC-2015 : SECOND DOSE OF GOLIMUMAB.
     Route: 058
  3. PREDNISOLONE. [Suspect]
     Active Substance: PREDNISOLONE
     Indication: PRODUCT USED FOR UNKNOWN INDICATION
     Route: 065
  4. COTRIM FORTE [Concomitant]
     Active Substance: SULFAMETHOXAZOLE\TRIMETHOPRIM
     Route: 065
  5. BUDENOFALK [Concomitant]
     Active Substance: BUDESONIDE
     Route: 065
  6. PANTOPRAZOLE [Concomitant]
     Active Substance: PANTOPRAZOLE SODIUM
     Route: 065
  7. SIMPONI [Suspect]
     Active Substance: GOLIMUMAB
     Indication: COLITIS ULCERATIVE
     Route: 058
     Dates: start: 20151204
  8. PREDNISOLONE. [Suspect]
     Active Substance: PREDNISOLONE
     Indication: PRODUCT USED FOR UNKNOWN INDICATION
     Route: 065

REACTIONS (12)
  - Relapsing fever [Recovering/Resolving]
  - Folliculitis [Recovered/Resolved]
  - Hepatic steatosis [Recovered/Resolved]
  - Colitis ulcerative [Recovered/Resolved]
  - Nausea [Recovering/Resolving]
  - Cytomegalovirus colitis [Recovered/Resolved]
  - Weight decreased [Unknown]
  - Venous thrombosis [Recovered/Resolved]
  - Hypokalaemia [Recovered/Resolved]
  - Aphthous ulcer [Recovered/Resolved]
  - Decreased appetite [Recovering/Resolving]
  - Oral candidiasis [Recovered/Resolved]

NARRATIVE: CASE EVENT DATE: 20151217
